FAERS Safety Report 4881710-9 (Version None)
Quarter: 2006Q1

REPORT INFORMATION
  Report Type: 
  Country: None (occurrence: None)
  Receive Date: 20060116
  Receipt Date: 20050928
  Transmission Date: 20060701
  Serious: Yes (Hospitalization, Disabling)
  Sender: FDA-Public Use
  Company Number: US-ROCHE-419573

PATIENT
  Sex: Male
  Weight: 52.2 kg

DRUGS (4)
  1. ACCUTANE [Suspect]
     Route: 065
     Dates: start: 19940815, end: 19940915
  2. ACCUTANE [Suspect]
     Route: 065
     Dates: start: 19980115, end: 19980615
  3. ACCUTANE [Suspect]
     Route: 065
     Dates: start: 19980815, end: 19990915
  4. ACCUTANE [Suspect]
     Route: 065
     Dates: start: 20021115, end: 20030415

REACTIONS (59)
  - ABDOMINAL PAIN [None]
  - ANAEMIA [None]
  - ANOREXIA [None]
  - ANXIETY [None]
  - ASTHENIA [None]
  - BLOOD BILIRUBIN INCREASED [None]
  - BREAST MASS [None]
  - CHEST PAIN [None]
  - COLITIS [None]
  - COLITIS ULCERATIVE [None]
  - COUGH [None]
  - CROHN'S DISEASE [None]
  - DEPRESSION [None]
  - DIARRHOEA [None]
  - EAR DISCOMFORT [None]
  - EMOTIONAL DISTRESS [None]
  - ERYTHEMA [None]
  - FAECAL FAT INCREASED [None]
  - FATIGUE [None]
  - GASTRIC DISORDER [None]
  - GASTROINTESTINAL DISORDER [None]
  - HAEMATOCHEZIA [None]
  - HEPATIC ENZYME INCREASED [None]
  - INCREASED APPETITE [None]
  - INFLAMMATION [None]
  - INFLAMMATORY BOWEL DISEASE [None]
  - INFLUENZA [None]
  - INGROWING NAIL [None]
  - INJURY [None]
  - INTESTINAL HAEMORRHAGE [None]
  - IRRITABLE BOWEL SYNDROME [None]
  - LOW DENSITY LIPOPROTEIN DECREASED [None]
  - MENTAL DISORDER [None]
  - MONOCYTE PERCENTAGE INCREASED [None]
  - MUSCLE SPASMS [None]
  - NASOPHARYNGITIS [None]
  - NAUSEA [None]
  - OCCULT BLOOD POSITIVE [None]
  - PAIN [None]
  - PALLOR [None]
  - PANIC ATTACK [None]
  - PHARYNGEAL ULCERATION [None]
  - PHARYNGITIS [None]
  - PHARYNGOLARYNGEAL PAIN [None]
  - PRODUCTIVE COUGH [None]
  - PSEUDOPOLYP [None]
  - PYREXIA [None]
  - RASH [None]
  - RECTAL HAEMORRHAGE [None]
  - RED BLOOD CELL SEDIMENTATION RATE INCREASED [None]
  - RHINORRHOEA [None]
  - SINUSITIS [None]
  - SKIN LESION [None]
  - SOMNOLENCE [None]
  - TINNITUS [None]
  - TOOTH ABSCESS [None]
  - ULCER [None]
  - URTICARIA [None]
  - WHEEZING [None]
